FAERS Safety Report 4564436-0 (Version None)
Quarter: 2005Q1

REPORT INFORMATION
  Report Type: 
  Country: None (occurrence: None)
  Receive Date: 20050128
  Receipt Date: 20041105
  Transmission Date: 20050727
  Serious: Yes (Other)
  Sender: FDA-Public Use
  Company Number: US-GLAXOSMITHKLINE-A0532865A

PATIENT

DRUGS (2)
  1. EPIVIR [Suspect]
     Indication: HIV INFECTION
     Route: 048
  2. UNKNOWN MEDICATION [Concomitant]

REACTIONS (1)
  - ANAEMIA [None]
